FAERS Safety Report 6480228-X (Version None)
Quarter: 2009Q4

REPORT INFORMATION
  Report Type: 
  Country: None (occurrence: None)
  Receive Date: 20091202
  Receipt Date: 20091117
  Transmission Date: 20100525
  Serious: No
  Sender: FDA-Public Use
  Company Number: SPI200900385

PATIENT
  Age: 23 Year
  Sex: Female

DRUGS (3)
  1. AMITIZA [Suspect]
     Indication: IRRITABLE BOWEL SYNDROME
     Dosage: 8 MCG, QD, ORAL ; 16MCG IN AM, 8MCG IN PM, ORAL
     Route: 048
     Dates: start: 20080101, end: 20090101
  2. AMITIZA [Suspect]
     Indication: IRRITABLE BOWEL SYNDROME
     Dosage: 8 MCG, QD, ORAL ; 16MCG IN AM, 8MCG IN PM, ORAL
     Route: 048
     Dates: start: 20090101
  3. DESOGEN [Concomitant]

REACTIONS (3)
  - CHEST DISCOMFORT [None]
  - DRUG TOLERANCE [None]
  - DYSPNOEA [None]
